FAERS Safety Report 12111419 (Version 1)
Quarter: 2016Q1

REPORT INFORMATION
  Report Type: Spontaneous
  Country: US (occurrence: US)
  Receive Date: 20160224
  Receipt Date: 20160224
  Transmission Date: 20160526
  Serious: No
  Sender: FDA-Public Use
  Company Number: US-JAZZ-2015-US-012547

PATIENT
  Sex: Male

DRUGS (2)
  1. PRIALT [Suspect]
     Active Substance: ZICONOTIDE ACETATE
     Indication: PAIN
  2. MORPHINE [Suspect]
     Active Substance: MORPHINE
     Indication: PAIN
     Dosage: UNK MG, QH
     Route: 037

REACTIONS (10)
  - Nerve injury [Unknown]
  - Hypoaesthesia [Unknown]
  - Device issue [Unknown]
  - Disability [Unknown]
  - Neurological symptom [Unknown]
  - Toxicity to various agents [Unknown]
  - Immune system disorder [Unknown]
  - Neuroma [Unknown]
  - Withdrawal syndrome [Unknown]
  - Overdose [Unknown]

NARRATIVE: CASE EVENT DATE: 1997
